FAERS Safety Report 20840454 (Version 1)
Quarter: 2022Q2

REPORT INFORMATION
  Report Type: Spontaneous
  Country: US (occurrence: None)
  Receive Date: 20220517
  Receipt Date: 20220517
  Transmission Date: 20220721
  Serious: No
  Sender: FDA-Public Use
  Company Number: None

PATIENT
  Age: 78 Year
  Sex: Female
  Weight: 69.03 kg

DRUGS (9)
  1. PAXLOVID [Suspect]
     Active Substance: NIRMATRELVIR\RITONAVIR
     Indication: SARS-CoV-2 test positive
     Dosage: OTHER QUANTITY : 30 TABLET(S);?FREQUENCY : TWICE A DAY;?
     Route: 048
     Dates: start: 20220512, end: 20220514
  2. NEBIVOLOL [Concomitant]
     Active Substance: NEBIVOLOL
  3. MONTELUKAST [Concomitant]
     Active Substance: MONTELUKAST SODIUM
  4. AZELASTINE [Concomitant]
     Active Substance: AZELASTINE
  5. ZOLPIDEM [Concomitant]
     Active Substance: ZOLPIDEM TARTRATE
  6. ESTRADIOL [Concomitant]
     Active Substance: ESTRADIOL
  7. Move Free Tumeric [Concomitant]
  8. Pantothenic acid optimized folate vitamin e [Concomitant]
  9. PAXLOVID [Concomitant]
     Active Substance: NIRMATRELVIR\RITONAVIR

REACTIONS (3)
  - Muscle spasms [None]
  - Paraesthesia [None]
  - Blood pressure increased [None]

NARRATIVE: CASE EVENT DATE: 20220513
